FAERS Safety Report 6091071-8 (Version None)
Quarter: 2009Q1

REPORT INFORMATION
  Report Type: 
  Country: None (occurrence: None)
  Receive Date: 20090225
  Receipt Date: 20090212
  Transmission Date: 20090719
  Serious: Yes (Hospitalization)
  Sender: FDA-Public Use
  Company Number: FR-PFIZER INC-2009171105

PATIENT

DRUGS (11)
  1. MEDROL [Suspect]
     Indication: BRAIN NEOPLASM
     Dosage: 50 MG, 1X/DAY
     Route: 048
     Dates: start: 20071109, end: 20080221
  2. NORSET [Suspect]
     Indication: DEPRESSION
     Route: 048
     Dates: start: 20070901, end: 20080220
  3. TRAMADOL [Suspect]
     Dosage: UNK
     Route: 048
     Dates: start: 20070901, end: 20080220
  4. TRAMADOL HCL [Suspect]
     Indication: PAIN
     Dosage: 200 MG, 1X/DAY
     Route: 048
     Dates: start: 20070901, end: 20080220
  5. TENODAL [Suspect]
     Indication: BRAIN NEOPLASM
     Route: 048
     Dates: start: 20071218, end: 20080220
  6. BROMAZEPAM [Suspect]
     Indication: ANXIETY
     Route: 048
     Dates: start: 20070901, end: 20080220
  7. NEXIUM [Suspect]
     Dosage: 1 DF, AS NEEDED
     Route: 048
     Dates: start: 20070927, end: 20080220
  8. KEPPRA [Concomitant]
     Indication: EPILEPSY
     Dosage: 500 MG, 2X/DAY
     Route: 048
     Dates: start: 20070501, end: 20080222
  9. LOPERAMIDE [Concomitant]
     Route: 048
     Dates: start: 20080215, end: 20080215
  10. LOPERAMIDE [Concomitant]
     Dates: start: 20080215, end: 20080215
  11. RHINUREFLEX [Concomitant]
     Route: 048
     Dates: start: 20080215, end: 20080215

REACTIONS (1)
  - STEVENS-JOHNSON SYNDROME [None]
